FAERS Safety Report 23650078 (Version 1)
Quarter: 2024Q1

REPORT INFORMATION
  Report Type: Spontaneous
  Country: US (occurrence: None)
  Receive Date: 20240319
  Receipt Date: 20240319
  Transmission Date: 20240409
  Serious: No
  Sender: FDA-Public Use
  Company Number: US-ROCHE-3475609

PATIENT
  Sex: Female

DRUGS (1)
  1. ERIVEDGE [Suspect]
     Active Substance: VISMODEGIB
     Indication: Squamous cell carcinoma of skin
     Route: 048
     Dates: start: 202310

REACTIONS (4)
  - Off label use [Unknown]
  - Muscle spasms [Unknown]
  - Hepatic pain [Unknown]
  - Ageusia [Unknown]
